FAERS Safety Report 12134178 (Version 6)
Quarter: 2016Q4

REPORT INFORMATION
  Report Type: Spontaneous
  Country: US (occurrence: US)
  Receive Date: 20160301
  Receipt Date: 20161110
  Transmission Date: 20170206
  Serious: Yes (Other)
  Sender: FDA-Public Use
  Company Number: US-GLAXOSMITHKLINE-US2016GSK027620

PATIENT
  Age: 49 Year
  Sex: Female
  Weight: 102.95 kg

DRUGS (13)
  1. ESCITALOPRAM [Concomitant]
     Active Substance: ESCITALOPRAM OXALATE
  2. ATORVASTATIN [Concomitant]
     Active Substance: ATORVASTATIN
  3. ALPRAZOLAM. [Concomitant]
     Active Substance: ALPRAZOLAM
  4. BENLYSTA [Suspect]
     Active Substance: BELIMUMAB
     Indication: SYSTEMIC LUPUS ERYTHEMATOSUS
     Dosage: UNK
     Dates: start: 2015
  5. CLOPIDOGREL [Concomitant]
     Active Substance: CLOPIDOGREL BISULFATE
  6. BABY ASPIRIN [Concomitant]
     Active Substance: ASPIRIN
  7. BENLYSTA [Suspect]
     Active Substance: BELIMUMAB
     Dosage: UNK
  8. METOPROLOL. [Concomitant]
     Active Substance: METOPROLOL
  9. PLAVIX [Concomitant]
     Active Substance: CLOPIDOGREL BISULFATE
  10. OXYCONTIN [Concomitant]
     Active Substance: OXYCODONE HYDROCHLORIDE
  11. HYDROCODONE [Concomitant]
     Active Substance: HYDROCODONE
  12. VITAMIN D [Concomitant]
     Active Substance: CHOLECALCIFEROL
  13. DOXEPIN [Concomitant]
     Active Substance: DOXEPIN

REACTIONS (9)
  - Vascular operation [Not Recovered/Not Resolved]
  - Injury associated with device [Unknown]
  - Antiphospholipid syndrome [Not Recovered/Not Resolved]
  - Hot flush [Unknown]
  - Poor venous access [Not Recovered/Not Resolved]
  - Drug dose omission [Not Recovered/Not Resolved]
  - Dehydration [Unknown]
  - Ill-defined disorder [Unknown]
  - Vascular access complication [Not Recovered/Not Resolved]

NARRATIVE: CASE EVENT DATE: 2016
